FAERS Safety Report 9261610 (Version 2)
Quarter: 2013Q3

REPORT INFORMATION
  Report Type: Spontaneous
  Country: US (occurrence: US)
  Receive Date: 20130429
  Receipt Date: 20130822
  Transmission Date: 20140515
  Serious: Yes (Hospitalization, Disabling, Other)
  Sender: FDA-Public Use
  Company Number: US-009507513-1304USA016936

PATIENT
  Sex: Female
  Weight: 81.63 kg

DRUGS (2)
  1. NUVARING [Suspect]
     Indication: CONTRACEPTION
     Dosage: UNK
     Route: 067
     Dates: start: 20111230, end: 201201
  2. NUVARING [Suspect]
     Dosage: UNK
     Route: 067
     Dates: start: 201203, end: 20120510

REACTIONS (6)
  - Overdose [Unknown]
  - Pulmonary embolism [Unknown]
  - Thyroid disorder [Unknown]
  - Depression [Unknown]
  - Vertigo [Unknown]
  - Dizziness [Unknown]
